FAERS Safety Report 12965981 (Version 1)
Quarter: 2016Q4

REPORT INFORMATION
  Report Type: Spontaneous
  Country: US (occurrence: US)
  Receive Date: 20161122
  Receipt Date: 20161122
  Transmission Date: 20170207
  Serious: Yes (Other)
  Sender: FDA-Public Use
  Company Number: US-SA-2016SA210102

PATIENT
  Sex: Male

DRUGS (4)
  1. LANTUS [Suspect]
     Active Substance: INSULIN GLARGINE
     Indication: DIABETES MELLITUS
     Dosage: DOSE:37 UNIT(S)
     Route: 065
  2. NOVOLOG [Suspect]
     Active Substance: INSULIN ASPART
     Route: 065
  3. NOVOLOG [Suspect]
     Active Substance: INSULIN ASPART
     Dosage: DOSE:37 UNIT(S)
     Route: 065
     Dates: start: 201604, end: 201604
  4. NOVOLOG [Suspect]
     Active Substance: INSULIN ASPART
     Dosage: DOSE:14 UNIT(S)
     Route: 065

REACTIONS (5)
  - Eye haemorrhage [Unknown]
  - Condition aggravated [Unknown]
  - Vision blurred [Unknown]
  - Wrong drug administered [Unknown]
  - Blood glucose decreased [Recovered/Resolved]

NARRATIVE: CASE EVENT DATE: 201604
